FAERS Safety Report 11005004 (Version 1)
Quarter: 2015Q2

REPORT INFORMATION
  Report Type: Spontaneous
  Country: US (occurrence: None)
  Receive Date: 20150408
  Receipt Date: 20150408
  Transmission Date: 20150821
  Serious: Yes (Hospitalization)
  Sender: FDA-Public Use
  Company Number: None

PATIENT
  Age: 61 Year
  Sex: Female

DRUGS (2)
  1. BACTRIM [Suspect]
     Active Substance: SULFAMETHOXAZOLE\TRIMETHOPRIM
     Dates: start: 20131015, end: 20131022
  2. OXYELITE PRO [Suspect]
     Active Substance: DIETARY SUPPLEMENT
     Dates: start: 20111104, end: 20131014

REACTIONS (2)
  - Drug-induced liver injury [None]
  - Jaundice [None]

NARRATIVE: CASE EVENT DATE: 20131024
